FAERS Safety Report 6480247-3 (Version None)
Quarter: 2009Q4

REPORT INFORMATION
  Report Type: 
  Country: None (occurrence: None)
  Receive Date: 20091208
  Receipt Date: 20091127
  Transmission Date: 20100525
  Serious: Yes (Hospitalization)
  Sender: FDA-Public Use
  Company Number: AU-WYE-G05009309

PATIENT
  Sex: Female

DRUGS (1)
  1. EFFEXOR XR [Suspect]
     Indication: DEPRESSION
     Dosage: 150MG DAILY LAST FEW YEARS TO 22-NOV-09, DOSE TAPERED 75MG DAILY 4 DAYS AGO FROM 23-NOV-09
     Route: 048
     Dates: end: 20091122

REACTIONS (9)
  - DRUG WITHDRAWAL SYNDROME [None]
  - HEADACHE [None]
  - LETHARGY [None]
  - MALAISE [None]
  - MYALGIA [None]
  - NAUSEA [None]
  - PAIN [None]
  - RETCHING [None]
  - VIRAL INFECTION [None]
